FAERS Safety Report 11825813 (Version 2)
Quarter: 2016Q1

REPORT INFORMATION
  Report Type: Other
  Country: GB (occurrence: GB)
  Receive Date: 20151211
  Receipt Date: 20160218
  Transmission Date: 20160525
  Serious: Yes (Disabling, Other)
  Sender: FDA-Public Use
  Company Number: GB-ASTELLAS-2015US046324

PATIENT
  Age: 32 Year
  Sex: Male
  Weight: 110 kg

DRUGS (9)
  1. PROTOPIC [Suspect]
     Active Substance: TACROLIMUS
     Indication: ECZEMA
     Dosage: UNK UNK, UNKNOWN FREQ.
     Route: 065
  2. FUCIBET CREAM [Suspect]
     Active Substance: BETAMETHASONE\FUSIDIC ACID
     Indication: ECZEMA
     Dosage: UNK, UNKNOWN FREQ.
     Route: 065
  3. AMITRIPTYLINE [Concomitant]
     Active Substance: AMITRIPTYLINE
     Indication: PRODUCT USED FOR UNKNOWN INDICATION
     Dosage: UNK, UNKNOWN FREQ.
     Route: 065
  4. ATARAX [Concomitant]
     Active Substance: HYDROXYZINE\HYDROXYZINE HYDROCHLORIDE
     Indication: PRODUCT USED FOR UNKNOWN INDICATION
     Dosage: UNK UNK, UNKNOWN FREQ.
     Route: 065
  5. PHENERGAN [Concomitant]
     Active Substance: PROMETHAZINE HYDROCHLORIDE
     Indication: PRODUCT USED FOR UNKNOWN INDICATION
     Dosage: UNK UNK, UNKNOWN FREQ.
     Route: 065
  6. LOCOID [Suspect]
     Active Substance: HYDROCORTISONE BUTYRATE
     Indication: ECZEMA
     Dosage: UNK, UNKNOWN FREQ.
     Route: 065
  7. BETNOVATE [Suspect]
     Active Substance: BETAMETHASONE
     Indication: DERMATITIS ATOPIC
     Dosage: 1 DF, TWICE DAILY (SPREAD THINLY TO AFFECTED AREA)
     Route: 061
     Dates: start: 20040101, end: 20150801
  8. CHLORPHENAMINE [Concomitant]
     Active Substance: CHLORPHENIRAMINE MALEATE
     Indication: PRODUCT USED FOR UNKNOWN INDICATION
     Dosage: UNK UNK, UNKNOWN FREQ.
     Route: 065
  9. TERBUTALINE [Concomitant]
     Active Substance: TERBUTALINE
     Indication: PRODUCT USED FOR UNKNOWN INDICATION
     Dosage: UNK UNK, UNKNOWN FREQ.
     Route: 065

REACTIONS (12)
  - Erythema [Not Recovered/Not Resolved]
  - Steroid withdrawal syndrome [Unknown]
  - Skin atrophy [Unknown]
  - Drug dependence [Not Recovered/Not Resolved]
  - Fatigue [Unknown]
  - Insomnia [Unknown]
  - Eczema weeping [Unknown]
  - Activities of daily living impaired [Unknown]
  - Generalised erythema [Unknown]
  - Temperature regulation disorder [Unknown]
  - Eczema [Unknown]
  - Pruritus [Unknown]
